FAERS Safety Report 19753069 (Version 2)
Quarter: 2021Q3

REPORT INFORMATION
  Report Type: Spontaneous
  Country: US (occurrence: US)
  Receive Date: 20210826
  Receipt Date: 20210907
  Transmission Date: 20211014
  Serious: Yes (Hospitalization)
  Sender: FDA-Public Use
  Company Number: US-TEVA-2021-US-1944711

PATIENT
  Age: 49 Year
  Sex: Male

DRUGS (14)
  1. ETOPOSIDE. [Suspect]
     Active Substance: ETOPOSIDE
     Indication: NASAL SINUS CANCER
     Route: 065
  2. OXYCODONE [Suspect]
     Active Substance: OXYCODONE
     Indication: OROPHARYNGEAL PAIN
     Dosage: APPROXIMATELY 45MG MORPHINE EQUIVALENT DAILY DOSE
     Route: 065
  3. SALINE [Suspect]
     Active Substance: SODIUM CHLORIDE
     Indication: MUCOSAL INFLAMMATION
     Dosage: RINSE
     Route: 065
  4. CARBOPLATIN. [Suspect]
     Active Substance: CARBOPLATIN
     Indication: NASAL SINUS CANCER
     Route: 065
  5. KETAMINE [Suspect]
     Active Substance: KETAMINE
     Indication: OROPHARYNGEAL PAIN
     Dosage: 80 MILLIGRAM DAILY; DOSE: 20MG (10MG PER NOSTRIL); INTRAVENOUS SOLUTION WAS DELIVERED INTRANASALLY
     Route: 045
  6. KETAMINE [Suspect]
     Active Substance: KETAMINE
     Dosage: 60 MILLIGRAM DAILY; DOSE: 10MG (5MG PER NOSTRIL); INTRAVENOUS SOLUTION WAS DELIVERED INTRANASALLY
     Route: 045
  7. HYDROMORPHONE [Suspect]
     Active Substance: HYDROMORPHONE
     Indication: PAIN
     Route: 042
  8. KETAMINE [Suspect]
     Active Substance: KETAMINE
     Indication: PAIN
     Dosage: RINSE
     Route: 048
  9. CISPLATIN. [Suspect]
     Active Substance: CISPLATIN
     Indication: NASAL SINUS CANCER
     Route: 065
  10. DEXAMETHASONE. [Suspect]
     Active Substance: DEXAMETHASONE
     Indication: PAIN
     Route: 042
  11. BIOTENE NOS [Suspect]
     Active Substance: CETYLPYRIDINIUM CHLORIDE OR SODIUM FLUORIDE OR SODIUM MONOFLUOROPHOSPHATE OR GLUCOSE OXIDASE\LACTOFERRIN\LACTOPEROXIDASE BOVINE\LYSOZYME
     Indication: MUCOSAL INFLAMMATION
     Route: 048
  12. MAGIC MOUTHWASH [Suspect]
     Active Substance: DIPHENHYDRAMINE HYDROCHLORIDE\LIDOCAINE HYDROCHLORIDE\NYSTATIN
     Indication: MUCOSAL INFLAMMATION
     Route: 065
  13. PURE BAKING SODA [Suspect]
     Active Substance: SODIUM BICARBONATE
     Indication: MUCOSAL INFLAMMATION
     Route: 065
  14. KETAMINE [Suspect]
     Active Substance: KETAMINE
     Dosage: 40 MILLIGRAM DAILY; DOSE: 10MG (5MG PER NOSTRIL) AS NEEDED FOR PAIN; INTRAVENOUS SOLUTION WAS DELIVE
     Route: 045

REACTIONS (8)
  - Mucosal inflammation [Recovered/Resolved]
  - Pain [Recovered/Resolved]
  - Hallucination, visual [Unknown]
  - Somnolence [Unknown]
  - Off label use [Unknown]
  - Burning sensation [Recovered/Resolved]
  - Drug ineffective [Unknown]
  - Confusional state [Unknown]
